FAERS Safety Report 9027030 (Version 1)
Quarter: 2013Q1

REPORT INFORMATION
  Report Type: Spontaneous
  Country: US (occurrence: US)
  Receive Date: 20130123
  Receipt Date: 20130123
  Transmission Date: 20140127
  Serious: No
  Sender: FDA-Public Use
  Company Number: US-009507513-1301USA010630

PATIENT
  Age: 12 Year
  Sex: Male

DRUGS (2)
  1. LOTRIMIN AF RINGWORM CREAM [Suspect]
     Indication: TINEA INFECTION
     Dosage: UNK, UNKNOWN
     Route: 061
  2. LOTRIMIN AF RINGWORM CREAM [Suspect]
     Indication: MEDICAL OBSERVATION

REACTIONS (1)
  - Chest pain [Unknown]
